FAERS Safety Report 8330300-4 (Version None)
Quarter: 2012Q2

REPORT INFORMATION
  Report Type: 
  Country: None (occurrence: None)
  Receive Date: 20120502
  Receipt Date: 20120501
  Transmission Date: 20120825
  Serious: Yes (Life-Threatening, Hospitalization, Disabling, Other)
  Sender: FDA-Public Use
  Company Number: GB-ABBOTT-12P-167-0926369-00

PATIENT
  Age: 52 Year
  Sex: Male
  Weight: 68 kg

DRUGS (4)
  1. KALETRA [Suspect]
     Indication: HIV INFECTION
     Dosage: 2 TABS
     Dates: start: 20080101, end: 20120101
  2. ANALGESIA [Concomitant]
     Indication: PRODUCT USED FOR UNKNOWN INDICATION
  3. ABACAVIR SULFATE/LAMIVUDINE [Concomitant]
     Indication: HIV INFECTION
     Dosage: 1 TAB/DAY
     Route: 048
     Dates: start: 20080101
  4. OPIOIDS [Concomitant]
     Indication: PRODUCT USED FOR UNKNOWN INDICATION

REACTIONS (7)
  - LUNG NEOPLASM [None]
  - RENAL MASS [None]
  - LYMPHADENOPATHY [None]
  - RENAL CANCER METASTATIC [None]
  - WEIGHT DECREASED [None]
  - METASTASES TO LUNG [None]
  - METASTASES TO BONE [None]
